FAERS Safety Report 5785263-2 (Version None)
Quarter: 2008Q2

REPORT INFORMATION
  Report Type: 
  Country: None (occurrence: None)
  Receive Date: 20080605
  Receipt Date: 20080424
  Transmission Date: 20081010
  Serious: No
  Sender: FDA-Public Use
  Company Number: A0724474A

PATIENT
  Age: 39 Year
  Sex: Female

DRUGS (1)
  1. ALLI [Suspect]
     Dates: start: 20080413

REACTIONS (3)
  - FREQUENT BOWEL MOVEMENTS [None]
  - HUNGER [None]
  - RECTAL DISCHARGE [None]
